FAERS Safety Report 9723295 (Version 2)
Quarter: 2014Q2

REPORT INFORMATION
  Report Type: Report from Study
  Country: GB (occurrence: GB)
  Receive Date: 20131202
  Receipt Date: 20140625
  Transmission Date: 20141212
  Serious: Yes (Hospitalization)
  Sender: FDA-Public Use
  Company Number: GB-GLAXOSMITHKLINE-B0930003B

PATIENT
  Age: 79 Year
  Sex: Male
  Weight: 71 kg

DRUGS (9)
  1. OFATUMUMAB [Suspect]
     Indication: CHRONIC LYMPHOCYTIC LEUKAEMIA
     Dosage: 1000MG PER DAY
     Route: 042
     Dates: start: 20131003, end: 20140418
  2. CHLORAMBUCIL [Suspect]
     Indication: CHRONIC LYMPHOCYTIC LEUKAEMIA
     Dosage: 140MG PER DAY
     Route: 048
     Dates: start: 20131003
  3. PARACETAMOL [Concomitant]
     Indication: CHRONIC LYMPHOCYTIC LEUKAEMIA
     Dosage: 1G PER DAY
     Route: 048
     Dates: start: 20131003
  4. CHLORPHENIRAMINE [Concomitant]
     Indication: CHRONIC LYMPHOCYTIC LEUKAEMIA
     Dosage: 10MG PER DAY
     Route: 042
     Dates: start: 20131003, end: 20131003
  5. PREDNISOLONE [Concomitant]
     Indication: CHRONIC LYMPHOCYTIC LEUKAEMIA
     Dosage: 100MG PER DAY
     Route: 042
     Dates: start: 20131003, end: 20131003
  6. ALLOPURINOL [Concomitant]
     Indication: CHRONIC LYMPHOCYTIC LEUKAEMIA
     Dosage: 300MG PER DAY
     Route: 048
     Dates: start: 20130904, end: 20130910
  7. METOCLOPRAMIDE [Concomitant]
     Indication: CHRONIC LYMPHOCYTIC LEUKAEMIA
     Dosage: 20MG PER DAY
     Route: 048
     Dates: start: 20131003
  8. ACICLOVIR [Concomitant]
     Indication: CHRONIC LYMPHOCYTIC LEUKAEMIA
     Dosage: 400MG PER DAY
     Route: 048
     Dates: start: 20130904
  9. GRANULOCYTE COLONY-STIMULATING FACTOR NOS [Concomitant]

REACTIONS (1)
  - Lung infection [Recovered/Resolved]
